FAERS Safety Report 16318030 (Version 2)
Quarter: 2019Q2

REPORT INFORMATION
  Report Type: Spontaneous
  Country: GB (occurrence: GB)
  Receive Date: 20190516
  Receipt Date: 20190517
  Transmission Date: 20190711
  Serious: Yes (Death, Hospitalization)
  Sender: FDA-Public Use
  Company Number: GB-TEVA-2019-GB-1049052

PATIENT
  Age: 33 Year
  Sex: Male

DRUGS (3)
  1. 5F-ADB [Interacting]
     Active Substance: 5-FLUORO-ADB, (+/-)-
     Dates: start: 2016
  2. OLANZAPINE. [Suspect]
     Active Substance: OLANZAPINE
     Indication: SCHIZOPHRENIA
     Dosage: 5 MILLIGRAM DAILY;
     Route: 065
     Dates: start: 20160518
  3. RISPERIDONE. [Concomitant]
     Active Substance: RISPERIDONE
     Dosage: SWITCHED TO OLANZAPINE
     Route: 065

REACTIONS (12)
  - Hypertension [Fatal]
  - Respiratory arrest [Fatal]
  - Hypersensitivity [Fatal]
  - Tachycardia [Fatal]
  - Circulatory collapse [Fatal]
  - Hypoxia [Fatal]
  - Eosinophilia [Fatal]
  - Loss of consciousness [Fatal]
  - Agitation [Fatal]
  - Foaming at mouth [Fatal]
  - Haemoptysis [Fatal]
  - Drug interaction [Fatal]

NARRATIVE: CASE EVENT DATE: 20160618
